FAERS Safety Report 6870570-2 (Version None)
Quarter: 2010Q3

REPORT INFORMATION
  Report Type: 
  Country: None (occurrence: None)
  Receive Date: 20100723
  Receipt Date: 20100712
  Transmission Date: 20110219
  Serious: Yes (Other)
  Sender: FDA-Public Use
  Company Number: CO-JNJFOC-20100700143

PATIENT
  Age: 49 Year
  Sex: Male

DRUGS (2)
  1. REMICADE [Suspect]
     Indication: PSORIASIS
     Dosage: 1-22 APPLICATIONS
     Route: 042
  2. REMICADE [Suspect]
     Dosage: 23RD APPLICATION
     Route: 042

REACTIONS (2)
  - PULMONARY CALCIFICATION [None]
  - TUBERCULIN TEST POSITIVE [None]
